FAERS Safety Report 5780276-9 (Version None)
Quarter: 2008Q2

REPORT INFORMATION
  Report Type: 
  Country: None (occurrence: None)
  Receive Date: 20080620
  Receipt Date: 20080618
  Transmission Date: 20081010
  Serious: Yes (Death, Other)
  Sender: FDA-Public Use
  Company Number: PHHY2008GB11385

PATIENT
  Sex: Female

DRUGS (2)
  1. TEGRETOL [Suspect]
     Dosage: 400 MG, BID
  2. VALPROATE SODIUM [Concomitant]
     Dosage: 200 MG MORNING AND 400 MG IN THE EVENING

REACTIONS (2)
  - ANTICONVULSANT DRUG LEVEL INCREASED [None]
  - DEATH [None]
